FAERS Safety Report 25785476 (Version 1)
Quarter: 2025Q3

REPORT INFORMATION
  Report Type: Spontaneous
  Country: US (occurrence: US)
  Receive Date: 20250910
  Receipt Date: 20250910
  Transmission Date: 20251020
  Serious: No
  Sender: TEVA
  Company Number: US-TEVA-VS-3366775

PATIENT
  Sex: Female

DRUGS (2)
  1. CILOSTAZOL [Interacting]
     Active Substance: CILOSTAZOL
     Indication: Arterial disorder
     Route: 065
     Dates: start: 202506, end: 2025
  2. CLOPIDOGREL [Interacting]
     Active Substance: CLOPIDOGREL BISULFATE
     Indication: Product used for unknown indication
     Route: 065
     Dates: start: 2024

REACTIONS (5)
  - Myalgia [Unknown]
  - Pain in extremity [Not Recovered/Not Resolved]
  - Drug interaction [Unknown]
  - Adverse event [Unknown]
  - Adverse drug reaction [Unknown]

NARRATIVE: CASE EVENT DATE: 20250101
